FAERS Safety Report 11922472 (Version 1)
Quarter: 2016Q1

REPORT INFORMATION
  Report Type: Spontaneous
  Country: BR (occurrence: BR)
  Receive Date: 20160115
  Receipt Date: 20160115
  Transmission Date: 20160526
  Serious: Yes (Hospitalization)
  Sender: FDA-Public Use
  Company Number: BR-PFIZER INC-2015449048

PATIENT
  Age: 70 Year
  Sex: Female

DRUGS (6)
  1. DOSTINEX [Suspect]
     Active Substance: CABERGOLINE
     Dosage: ONE TABLET (5 MG), WEEKLY
     Dates: start: 2015
  2. DOSTINEX [Suspect]
     Active Substance: CABERGOLINE
     Dosage: 5 MG (ONE TABLET), 1X/DAY
     Dates: start: 201505
  3. DOSTINEX [Suspect]
     Active Substance: CABERGOLINE
     Dosage: 3 TABLETS OF 5 MG (15 MG), WEEKLY
     Dates: start: 2015
  4. DOSTINEX [Suspect]
     Active Substance: CABERGOLINE
     Indication: PITUITARY TUMOUR BENIGN
     Dosage: UNK
  5. DOSTINEX [Suspect]
     Active Substance: CABERGOLINE
     Dosage: 2 TABLETS OF 5 MG (10 MG), WEEKLY
     Dates: start: 2015
  6. THIOCTACID /00213801/ [Concomitant]
     Active Substance: .ALPHA.-LIPOIC ACID
     Dosage: UNK
     Dates: start: 2014

REACTIONS (11)
  - Feeling abnormal [Recovered/Resolved]
  - Nausea [Recovered/Resolved]
  - Eating disorder [Recovered/Resolved]
  - Mood altered [Recovered/Resolved]
  - Bronchitis [Unknown]
  - Malaise [Recovered/Resolved]
  - Irritability [Recovered/Resolved]
  - Dizziness [Unknown]
  - Headache [Recovered/Resolved]
  - Weight decreased [Unknown]
  - Decreased appetite [Recovered/Resolved]

NARRATIVE: CASE EVENT DATE: 2013
